FAERS Safety Report 16092687 (Version 1)
Quarter: 2019Q1

REPORT INFORMATION
  Report Type: Spontaneous
  Country: US (occurrence: US)
  Receive Date: 20190319
  Receipt Date: 20190319
  Transmission Date: 20190418
  Serious: No
  Sender: FDA-Public Use
  Company Number: US-ASTRAZENECA-2019SE30239

PATIENT

DRUGS (1)
  1. FASENRA [Suspect]
     Active Substance: BENRALIZUMAB
     Route: 058

REACTIONS (6)
  - Swollen tongue [Unknown]
  - Headache [Unknown]
  - Oropharyngeal pain [Unknown]
  - Infection parasitic [Unknown]
  - Swelling face [Unknown]
  - Mouth swelling [Unknown]
